FAERS Safety Report 21110183 (Version 2)
Quarter: 2022Q3

REPORT INFORMATION
  Report Type: Spontaneous
  Country: US (occurrence: US)
  Receive Date: 20220721
  Receipt Date: 20220804
  Transmission Date: 20221027
  Serious: Yes (Hospitalization)
  Sender: FDA-Public Use
  Company Number: US-GBT-014457

PATIENT
  Sex: Female

DRUGS (1)
  1. OXBRYTA [Suspect]
     Active Substance: VOXELOTOR
     Indication: Sickle cell disease
     Route: 048
     Dates: start: 20220329

REACTIONS (4)
  - Cholecystectomy [Unknown]
  - Cholelithiasis [Unknown]
  - Therapy interrupted [Unknown]
  - Product dose omission issue [Unknown]
